FAERS Safety Report 24086859 (Version 4)
Quarter: 2024Q4

REPORT INFORMATION
  Report Type: Spontaneous
  Country: CA (occurrence: CA)
  Receive Date: 20240713
  Receipt Date: 20241003
  Transmission Date: 20250114
  Serious: Yes (Other)
  Sender: CELLTRION
  Company Number: CA-PFIZER INC-202400208189

PATIENT

DRUGS (15)
  1. INFLECTRA [Suspect]
     Active Substance: INFLIXIMAB-DYYB
     Indication: Crohn^s disease
     Dosage: 5 MG/KG, W0, W2, W6 AND THEN EVERY 8 WEEKS
     Route: 042
     Dates: start: 20240509
  2. INFLECTRA [Suspect]
     Active Substance: INFLIXIMAB-DYYB
     Dosage: 5 MG/KG, W0, W2, W6 AND THEN EVERY 8 WEEKS
     Route: 042
     Dates: start: 20240509
  3. INFLECTRA [Suspect]
     Active Substance: INFLIXIMAB-DYYB
     Dosage: 425 MG AFTER 8 WEEKS (5 MG/KG, W0, W2, W6 AND THEN EVERY 8 WEEKS)
     Route: 042
     Dates: start: 20240704
  4. INFLECTRA [Suspect]
     Active Substance: INFLIXIMAB-DYYB
     Dosage: 425 MG AFTER 8 WEEKS (5 MG/KG, W0, W2, W6 AND THEN EVERY 8 WEEKS)
     Route: 042
     Dates: start: 20240704
  5. INFLECTRA [Suspect]
     Active Substance: INFLIXIMAB-DYYB
     Dosage: 425 MG,(INCOMPLETE) AFTER 7 WEEKS AND 1 DAY, (5MG/KG, W0, W2, W6 AND THEN EVERY 8 WEEKS)
     Route: 042
     Dates: start: 20240823
  6. ASPIRIN [Concomitant]
     Active Substance: ASPIRIN
     Dosage: 80 MG
  7. CYCLOBENZAPRINE [Concomitant]
     Active Substance: CYCLOBENZAPRINE
     Dosage: 1 DF
  8. ENTOCORT [Concomitant]
     Active Substance: BUDESONIDE
     Dosage: 1 DF
     Dates: start: 202301
  9. HYDROCORTISONE [Concomitant]
     Active Substance: HYDROCORTISONE
     Dosage: 200 MG (PREMEDICATION X 12 MONTHS)
     Route: 042
  10. MAGNESIUM [Concomitant]
     Active Substance: MAGNESIUM
     Dosage: 250 MG
  11. PANTOPRAZOLE [Concomitant]
     Active Substance: PANTOPRAZOLE
     Dosage: 20 MG
  12. PENTASA [Concomitant]
     Active Substance: MESALAMINE
     Dosage: 1 DF
     Dates: start: 2000
  13. RANITIDINE [Concomitant]
     Active Substance: RANITIDINE
     Dosage: 1 DF, AS NEEDED (PRN)
  14. SUMATRIPTAN [Concomitant]
     Active Substance: SUMATRIPTAN
     Dosage: 1 DF
  15. VITAMIN B12 [Concomitant]
     Active Substance: CYANOCOBALAMIN
     Dosage: 1 DF

REACTIONS (9)
  - Nausea [Recovered/Resolved]
  - Back pain [Recovered/Resolved]
  - Blood pressure increased [Recovered/Resolved]
  - Fatigue [Recovered/Resolved]
  - Chest pain [Recovered/Resolved]
  - Anxiety [Recovered/Resolved]
  - Crying [Recovered/Resolved]
  - Drug specific antibody present [Unknown]
  - Inappropriate schedule of product administration [Unknown]

NARRATIVE: CASE EVENT DATE: 20240101
